FAERS Safety Report 24934536 (Version 1)
Quarter: 2025Q1

REPORT INFORMATION
  Report Type: Spontaneous
  Country: DE (occurrence: DE)
  Receive Date: 20250206
  Receipt Date: 20250206
  Transmission Date: 20250408
  Serious: Yes (Other)
  Sender: EXELIXIS
  Company Number: DE-IPSEN Group, Research and Development-2024-13216

PATIENT
  Age: 51 Year
  Sex: Male
  Weight: 117 kg

DRUGS (8)
  1. CABOMETYX [Suspect]
     Active Substance: CABOZANTINIB S-MALATE
     Indication: Metastatic renal cell carcinoma
     Route: 065
     Dates: start: 202401
  2. CANDESARTAN [Concomitant]
     Active Substance: CANDESARTAN
  3. PANTOPRAZOLE SODIUM [Concomitant]
     Active Substance: PANTOPRAZOLE SODIUM
     Dates: start: 202308
  4. METAMIZOLE [Concomitant]
     Active Substance: METAMIZOLE
     Dates: start: 202404
  5. FRESUBIN [Concomitant]
     Active Substance: AMINO ACIDS\DEXTROSE\ELECTROLYTES NOS\SOYBEAN OIL\VITAMINS
     Dates: start: 202404
  6. HYDROMORPHONE [Concomitant]
     Active Substance: HYDROMORPHONE
     Dates: start: 202405
  7. TAMSULOSIN [Concomitant]
     Active Substance: TAMSULOSIN
     Dates: start: 202405
  8. POLYETHYLENE GLYCOLS [Concomitant]
     Active Substance: POLYETHYLENE GLYCOLS
     Dates: start: 202405

REACTIONS (2)
  - Malignant neoplasm progression [Unknown]
  - Therapy non-responder [Unknown]

NARRATIVE: CASE EVENT DATE: 20240301
